FAERS Safety Report 5411019-6 (Version None)
Quarter: 2007Q3

REPORT INFORMATION
  Report Type: 
  Country: None (occurrence: None)
  Receive Date: 20070810
  Receipt Date: 20070802
  Transmission Date: 20080115
  Serious: Yes (Life-Threatening, Hospitalization, Other)
  Sender: FDA-Public Use
  Company Number: BE-BAYER-200712749GDS

PATIENT
  Age: 42 Year
  Sex: Male

DRUGS (6)
  1. LEVITRA [Suspect]
     Indication: ERECTILE DYSFUNCTION
     Route: 048
  2. LEVITRA [Suspect]
     Route: 048
  3. PIROXICAM [Concomitant]
     Indication: BACK PAIN
     Route: 065
  4. PIROXICAM [Concomitant]
     Route: 065
  5. CIALIS [Concomitant]
     Indication: UNEVALUABLE EVENT
  6. VIAGRA [Concomitant]
     Indication: UNEVALUABLE EVENT

REACTIONS (4)
  - HEADACHE [None]
  - ISCHAEMIC STROKE [None]
  - THROMBOSIS [None]
  - TRANSIENT ISCHAEMIC ATTACK [None]
